FAERS Safety Report 20740852 (Version 8)
Quarter: 2022Q2

REPORT INFORMATION
  Report Type: Report from Study
  Country: ES (occurrence: None)
  Receive Date: 20220422
  Receipt Date: 20220619
  Transmission Date: 20220720
  Serious: Yes (Hospitalization)
  Sender: FDA-Public Use
  Company Number: ES-ROCHE-3077612

PATIENT
  Age: 68 Year
  Sex: Female
  Weight: 69 kg

DRUGS (3)
  1. ATEZOLIZUMAB [Suspect]
     Active Substance: ATEZOLIZUMAB
     Indication: HER2 positive breast cancer
     Dosage: ON DAY 1, LAST DOSE BEFORE SAE WAS ON 03/DEC/2021?NUMBER OF COURSES 17
     Route: 041
     Dates: start: 20201201
  2. TRASTUZUMAB [Suspect]
     Active Substance: TRASTUZUMAB
     Indication: HER2 positive breast cancer
     Dosage: LOADING DOSE OF 8 MG/KG I.V. THEN 6 MG/KG?LAST DOSE BEFORE SAE WAS ON 03/DEC/2021 (TOTAL DOSE 414 M
     Route: 041
     Dates: start: 20201201
  3. PERTUZUMAB [Suspect]
     Active Substance: PERTUZUMAB
     Indication: HER2 positive breast cancer
     Dosage: LOADING DOSE OF 840 MG .V., THEN 420 MG?LAST DOSE BEFORE SAE WAS ON 03/DEC/2021 (TOTAL DOSE 420 MG)
     Route: 042
     Dates: start: 20201201

REACTIONS (2)
  - Pneumonitis [Recovered/Resolved]
  - Pneumonia [Not Recovered/Not Resolved]

NARRATIVE: CASE EVENT DATE: 20211215
